FAERS Safety Report 4340837-0 (Version None)
Quarter: 2004Q2

REPORT INFORMATION
  Report Type: 
  Country: None (occurrence: None)
  Receive Date: 20040419
  Receipt Date: 20040126
  Transmission Date: 20050107
  Serious: No
  Sender: FDA-Public Use
  Company Number: US-GLAXOSMITHKLINE-A0496688A

PATIENT
  Age: 66 Year
  Sex: Male

DRUGS (3)
  1. ESKALITH [Suspect]
     Dosage: 300MG TWICE PER DAY
     Route: 048
  2. LEXAPRO [Concomitant]
     Route: 048
  3. CELEBREX [Concomitant]
     Dosage: 100MG ALTERNATE DAYS
     Route: 065

REACTIONS (1)
  - ANTICONVULSANT DRUG LEVEL BELOW THERAPEUTIC [None]
